FAERS Safety Report 5593021-7 (Version None)
Quarter: 2008Q1

REPORT INFORMATION
  Report Type: 
  Country: None (occurrence: None)
  Receive Date: 20080116
  Receipt Date: 20080104
  Transmission Date: 20080703
  Serious: Yes (Other)
  Sender: FDA-Public Use
  Company Number: US-JNJFOC-20080101276

PATIENT
  Age: 39 Year
  Sex: Male

DRUGS (7)
  1. EXTRA STRENGTH TYLENOL [Suspect]
     Route: 048
  2. EXTRA STRENGTH TYLENOL [Suspect]
     Indication: INSOMNIA
     Route: 048
  3. CARDIZEM [Concomitant]
     Indication: BLOOD PRESSURE ABNORMAL
  4. LIPITOR [Concomitant]
     Indication: BLOOD CHOLESTEROL ABNORMAL
  5. PREVACID [Concomitant]
     Indication: GASTRIC DISORDER
  6. LOTREL [Concomitant]
     Indication: BLOOD PRESSURE ABNORMAL
  7. ALLEGRA [Concomitant]
     Indication: MULTIPLE ALLERGIES

REACTIONS (2)
  - BLOOD PRESSURE INCREASED [None]
  - EPISTAXIS [None]
